FAERS Safety Report 19207270 (Version 2)
Quarter: 2021Q2

REPORT INFORMATION
  Report Type: Spontaneous
  Country: US (occurrence: US)
  Receive Date: 20210503
  Receipt Date: 20210507
  Transmission Date: 20210717
  Serious: No
  Sender: FDA-Public Use
  Company Number: US-PFIZER INC-2021200263

PATIENT
  Age: 44 Year
  Sex: Female

DRUGS (1)
  1. IBRANCE [Suspect]
     Active Substance: PALBOCICLIB
     Dosage: 125 MG
     Dates: start: 20190601

REACTIONS (5)
  - Alopecia [Recovering/Resolving]
  - Arthralgia [Recovering/Resolving]
  - Onychoclasis [Unknown]
  - Nausea [Unknown]
  - Bone pain [Recovering/Resolving]
